FAERS Safety Report 6911434-5 (Version None)
Quarter: 2010Q3

REPORT INFORMATION
  Report Type: 
  Country: None (occurrence: None)
  Receive Date: 20100806
  Receipt Date: 20100729
  Transmission Date: 20110219
  Serious: Yes (Hospitalization)
  Sender: FDA-Public Use
  Company Number: GXKR2010TR08566

PATIENT
  Age: 50 Year
  Sex: Male
  Weight: 74 kg

DRUGS (2)
  1. SERTRALINE (NGX) [Suspect]
     Indication: DEPRESSION
     Dosage: 50 MG/DAY
     Route: 065
  2. CITALOPRAM HYDROBROMIDE [Interacting]
     Indication: DEPRESSION
     Dosage: 10 MG/DAY
     Route: 065

REACTIONS (7)
  - DIZZINESS [None]
  - DRUG INTERACTION [None]
  - INSOMNIA [None]
  - LOSS OF CONSCIOUSNESS [None]
  - NAUSEA [None]
  - SINUS ARREST [None]
  - SYNCOPE [None]
